FAERS Safety Report 7240216-2 (Version None)
Quarter: 2011Q1

REPORT INFORMATION
  Report Type: 
  Country: None (occurrence: None)
  Receive Date: 20110113
  Receipt Date: 20101229
  Transmission Date: 20110831
  Serious: Yes (Hospitalization)
  Sender: FDA-Public Use
  Company Number: 024212

PATIENT
  Sex: Female

DRUGS (2)
  1. CIMZIA [Suspect]
     Indication: CROHN'S DISEASE
     Dosage: (SUBCUTANEOUS)
     Route: 058
     Dates: start: 20101201
  2. CIMZIA [Suspect]
     Indication: CROHN'S DISEASE
     Dosage: (SUBCUTANEOUS)
     Route: 058
     Dates: start: 20100826

REACTIONS (5)
  - OFF LABEL USE [None]
  - INFREQUENT BOWEL MOVEMENTS [None]
  - NEPHROLITHIASIS [None]
  - DYSPEPSIA [None]
  - GASTROINTESTINAL MOTILITY DISORDER [None]
